FAERS Safety Report 20040513 (Version 1)
Quarter: 2021Q4

REPORT INFORMATION
  Report Type: Spontaneous
  Country: US (occurrence: None)
  Receive Date: 20211108
  Receipt Date: 20211108
  Transmission Date: 20220303
  Serious: No
  Sender: FDA-Public Use
  Company Number: None

PATIENT
  Sex: Female

DRUGS (1)
  1. AUSTEDO [Suspect]
     Active Substance: DEUTETRABENAZINE
     Indication: Dyskinesia
     Dosage: OTHER QUANTITY : 1 TABLET;?OTHER FREQUENCY : TITRATION;?
     Route: 048
     Dates: start: 20210915

REACTIONS (3)
  - Gait disturbance [None]
  - Restlessness [None]
  - Psychomotor hyperactivity [None]
